FAERS Safety Report 5239449-6 (Version None)
Quarter: 2007Q1

REPORT INFORMATION
  Report Type: 
  Country: None (occurrence: None)
  Receive Date: 20070216
  Receipt Date: 20070206
  Transmission Date: 20070707
  Serious: Yes (Hospitalization)
  Sender: FDA-Public Use
  Company Number: GB-AVENTIS-200710598GDDC

PATIENT
  Age: 25 Year
  Sex: Male

DRUGS (3)
  1. FLAGYL [Suspect]
  2. LANSOPRAZOLE [Suspect]
     Dosage: DOSE: UNK
     Route: 048
  3. CLARITHROMYCIN [Suspect]
     Dosage: DOSE: UNK
     Route: 048

REACTIONS (5)
  - AGITATION [None]
  - CONFUSIONAL STATE [None]
  - COORDINATION ABNORMAL [None]
  - INSOMNIA [None]
  - SWOLLEN TONGUE [None]
